FAERS Safety Report 4288917-2 (Version None)
Quarter: 2004Q1

REPORT INFORMATION
  Report Type: 
  Country: None (occurrence: None)
  Receive Date: 20040206
  Receipt Date: 20040123
  Transmission Date: 20041129
  Serious: Yes (Life-Threatening, Hospitalization)
  Sender: FDA-Public Use
  Company Number: M04-INT-011

PATIENT
  Age: 68 Year
  Sex: Female
  Weight: 70 kg

DRUGS (7)
  1. INTEGRILIN [Suspect]
     Indication: CORONARY ANGIOPLASTY
     Dosage: INTRAVENOUS BOLUS
     Route: 040
     Dates: start: 20031028
  2. ALTACE [Concomitant]
  3. ASPIRIN [Concomitant]
  4. FOLIC ACID [Concomitant]
  5. METOPROLOL [Concomitant]
  6. PLAVIX [Concomitant]
  7. SIMVASTATIN [Concomitant]

REACTIONS (5)
  - HAEMATOMA [None]
  - HYPOTENSION [None]
  - LYMPHOCYTE COUNT DECREASED [None]
  - PROCEDURAL COMPLICATION [None]
  - THROMBOCYTOPENIA [None]
